FAERS Safety Report 4300134-6 (Version None)
Quarter: 2004Q1

REPORT INFORMATION
  Report Type: 
  Country: None (occurrence: None)
  Receive Date: 20040218
  Receipt Date: 20040201
  Transmission Date: 20041129
  Serious: Yes (Life-Threatening)
  Sender: FDA-Public Use
  Company Number: JP_040102468

PATIENT
  Age: 2 Year
  Sex: Male
  Weight: 16 kg

DRUGS (7)
  1. ONCOVIN [Suspect]
     Indication: RHABDOMYOSARCOMA
     Dosage: 1.5 MG/OTHER
     Dates: start: 20020910
  2. DACTINOMYCIN [Concomitant]
  3. CYCLOPHOSPHAMIDE [Concomitant]
  4. ZOFRAN [Concomitant]
  5. UROMITEXAN (MESNA) [Concomitant]
  6. BAKTAR [Concomitant]
  7. FUNGIZONE [Concomitant]

REACTIONS (11)
  - ABDOMINAL PAIN UPPER [None]
  - ALANINE AMINOTRANSFERASE INCREASED [None]
  - ASPARTATE AMINOTRANSFERASE INCREASED [None]
  - BLOOD BILIRUBIN INCREASED [None]
  - BONE MARROW DEPRESSION [None]
  - DRUG HYPERSENSITIVITY [None]
  - EOSINOPHIL COUNT INCREASED [None]
  - GALLBLADDER DISORDER [None]
  - HEPATOMEGALY [None]
  - PLATELET COUNT DECREASED [None]
  - VENOOCCLUSIVE DISEASE [None]
